FAERS Safety Report 6094260-1 (Version None)
Quarter: 2009Q1

REPORT INFORMATION
  Report Type: 
  Country: None (occurrence: None)
  Receive Date: 20090225
  Receipt Date: 20090225
  Transmission Date: 20090719
  Serious: Yes (Other)
  Sender: FDA-Public Use
  Company Number: None

PATIENT
  Sex: Male
  Weight: 68.4932 kg

DRUGS (4)
  1. LEVETIRACETAM [Suspect]
     Indication: EPILEPSY
     Dosage: 1000MG BID PO
     Route: 048
     Dates: start: 20090211, end: 20090217
  2. CLONAZEPAM [Concomitant]
  3. MULTI-VITAMIN [Concomitant]
  4. VITAMIN D [Concomitant]

REACTIONS (4)
  - CONVULSION [None]
  - SEDATION [None]
  - SOMNOLENCE [None]
  - THERAPEUTIC RESPONSE UNEXPECTED WITH DRUG SUBSTITUTION [None]
